FAERS Safety Report 6734314-7 (Version None)
Quarter: 2010Q2

REPORT INFORMATION
  Report Type: 
  Country: None (occurrence: None)
  Receive Date: 20100520
  Receipt Date: 20100510
  Transmission Date: 20101027
  Serious: Yes (Other)
  Sender: FDA-Public Use
  Company Number: US-ROCHE-697718

PATIENT
  Age: 48 Year
  Sex: Male

DRUGS (7)
  1. PEGASYS [Suspect]
     Route: 058
     Dates: start: 20091101
  2. REBETOL [Suspect]
     Route: 048
     Dates: start: 20091101
  3. REBETOL [Suspect]
     Route: 048
  4. PHENTERMINE [Concomitant]
     Indication: WEIGHT CONTROL
     Route: 048
     Dates: end: 20100401
  5. LISINOPRIL AND HYDROCHLOROTHIAZIDE [Concomitant]
     Indication: HYPERTENSION
     Dosage: DRUG: ZESTORIL
     Route: 048
  6. NEXIUM [Concomitant]
     Dosage: RECEIVED EVERY MORNING, STOP DATE: 2010
     Route: 048
     Dates: start: 20100401
  7. CARDIZEM [Concomitant]
     Indication: HYPERTENSION
     Dosage: EVERY MORNING
     Route: 048

REACTIONS (4)
  - ANAEMIA [None]
  - POSITRON EMISSION TOMOGRAM ABNORMAL [None]
  - SARCOIDOSIS [None]
  - THERAPEUTIC RESPONSE DECREASED [None]
